FAERS Safety Report 19831394 (Version 1)
Quarter: 2021Q3

REPORT INFORMATION
  Report Type: Spontaneous
  Country: US (occurrence: US)
  Receive Date: 20210915
  Receipt Date: 20210915
  Transmission Date: 20211014
  Serious: Yes (Other)
  Sender: FDA-Public Use
  Company Number: None

PATIENT
  Age: 67 Year
  Sex: Male
  Weight: 90.4 kg

DRUGS (7)
  1. CEFEPIME [Concomitant]
     Active Substance: CEFEPIME HYDROCHLORIDE
     Dates: start: 20210820, end: 20210820
  2. REMDESIVIR. [Suspect]
     Active Substance: REMDESIVIR
     Indication: COVID-19
     Route: 042
     Dates: start: 20210821, end: 20210824
  3. BARICITINIB. [Concomitant]
     Active Substance: BARICITINIB
     Dates: start: 20210822, end: 20210824
  4. DEXAMETHASONE IV [Concomitant]
     Active Substance: DEXAMETHASONE
     Dates: start: 20210821, end: 20210824
  5. METOPROLOL TARTRATE. [Concomitant]
     Active Substance: METOPROLOL TARTRATE
     Dates: start: 20210821, end: 20210823
  6. CEFTRIAXONE. [Concomitant]
     Active Substance: CEFTRIAXONE
     Dates: start: 20210821, end: 20210824
  7. AZITHROMYCIN IV [Concomitant]
     Dates: start: 20210821, end: 20210824

REACTIONS (6)
  - Metabolic acidosis [None]
  - Cough [None]
  - Acute respiratory failure [None]
  - Respiratory alkalosis [None]
  - Oxygen saturation decreased [None]
  - Sinus bradycardia [None]

NARRATIVE: CASE EVENT DATE: 20210824
